FAERS Safety Report 18245179 (Version 2)
Quarter: 2021Q1

REPORT INFORMATION
  Report Type: Spontaneous
  Country: PL (occurrence: PL)
  Receive Date: 20200908
  Receipt Date: 20210118
  Transmission Date: 20210419
  Serious: Yes (Other)
  Sender: FDA-Public Use
  Company Number: PL-ROCHE-2673027

PATIENT
  Age: 58 Year
  Sex: Male
  Weight: 66 kg

DRUGS (7)
  1. SYNJARDY [Concomitant]
     Active Substance: EMPAGLIFLOZIN\METFORMIN HYDROCHLORIDE
     Dosage: FREQUENCY 1?0?0, 12.5/100 MG
     Route: 048
  2. ACARD [ACETYLSALICYLIC ACID] [Concomitant]
     Active Substance: ASPIRIN
     Dosage: FREQUENCY 1?0?0
     Route: 048
  3. SIOFOR [Concomitant]
     Active Substance: METFORMIN HYDROCHLORIDE
     Dosage: FREQUENCY 0?1?0.5
  4. BISOCARD [Concomitant]
     Active Substance: BISOPROLOL
     Dosage: 1?2?1 FREQUENCY
     Route: 048
  5. ATORVASTEROL [Concomitant]
     Active Substance: ATORVASTATIN
     Dosage: 0?0?1 FREQUENCY
     Route: 048
  6. POLPRIL [Concomitant]
     Active Substance: RAMIPRIL
     Dosage: FREQUENCY 0?0?1
     Route: 048
  7. ESBRIET [Suspect]
     Active Substance: PIRFENIDONE
     Indication: IDIOPATHIC PULMONARY FIBROSIS
     Dosage: FREQUENCY 3 OF 2
     Route: 048
     Dates: start: 20200718, end: 20200815

REACTIONS (1)
  - Stevens-Johnson syndrome [Recovering/Resolving]

NARRATIVE: CASE EVENT DATE: 20200903
